FAERS Safety Report 7807968-1 (Version None)
Quarter: 2011Q4

REPORT INFORMATION
  Report Type: 
  Country: None (occurrence: None)
  Receive Date: 20111011
  Receipt Date: 20111011
  Transmission Date: 20120403
  Serious: No
  Sender: FDA-Public Use
  Company Number: None

PATIENT
  Age: 71 Year
  Sex: Male
  Weight: 108.86 kg

DRUGS (1)
  1. LANTUS [Suspect]
     Indication: DIABETES MELLITUS
     Dosage: 30 UNITS
     Route: 003
     Dates: start: 20100604, end: 20110905

REACTIONS (5)
  - MEDICATION ERROR [None]
  - WRONG TECHNIQUE IN DRUG USAGE PROCESS [None]
  - PHYSICAL PRODUCT LABEL ISSUE [None]
  - RENAL IMPAIRMENT [None]
  - BLOOD GLUCOSE INCREASED [None]
